FAERS Safety Report 23310618 (Version 5)
Quarter: 2025Q1

REPORT INFORMATION
  Report Type: Report from Study
  Country: JP (occurrence: JP)
  Receive Date: 20231218
  Receipt Date: 20250113
  Transmission Date: 20250409
  Serious: Yes (Hospitalization, Other)
  Sender: AMGEN
  Company Number: JP-KISSEI-TV20230731_P_1

PATIENT
  Age: 32 Year
  Sex: Male
  Weight: 112.1 kg

DRUGS (46)
  1. AVACOPAN [Suspect]
     Active Substance: AVACOPAN
     Indication: Granulomatosis with polyangiitis
     Dosage: 30 MG, BID
     Route: 048
     Dates: start: 20230527, end: 20230915
  2. AVACOPAN [Suspect]
     Active Substance: AVACOPAN
     Dosage: 30,MG,BID
     Route: 048
     Dates: start: 20231002, end: 20240318
  3. PREDNISOLONE [Suspect]
     Active Substance: PREDNISOLONE
     Indication: Granulomatosis with polyangiitis
     Dosage: 115 MG, QD PERORAL MEDICINE
     Route: 048
  4. PREDNISOLONE [Suspect]
     Active Substance: PREDNISOLONE
     Dosage: 80 MG, QD PERORAL MEDICINE
     Route: 048
     Dates: end: 20230601
  5. PREDNISOLONE [Suspect]
     Active Substance: PREDNISOLONE
     Dosage: 70 MG, QD PERORAL MEDICINE
     Route: 048
     Dates: end: 20230608
  6. PREDNISOLONE [Suspect]
     Active Substance: PREDNISOLONE
     Dosage: 60 MG, QD PERORAL MEDICINE
     Route: 048
     Dates: start: 20230609, end: 20230615
  7. PREDNISOLONE [Suspect]
     Active Substance: PREDNISOLONE
     Dosage: 50 MG, QD PERORAL MEDICINE
     Route: 048
     Dates: start: 20230616, end: 20230622
  8. PREDNISOLONE [Suspect]
     Active Substance: PREDNISOLONE
     Dosage: 40 MG, QD PERORAL MEDICINE
     Route: 048
     Dates: start: 20230623, end: 20230629
  9. PREDNISOLONE [Suspect]
     Active Substance: PREDNISOLONE
     Dosage: 30 MG, QD PERORAL MEDICINE
     Route: 048
     Dates: start: 20230630, end: 20230723
  10. PREDNISOLONE [Suspect]
     Active Substance: PREDNISOLONE
     Dosage: 25 MG, QD PERORAL MEDICINE
     Route: 048
     Dates: start: 20230724, end: 20230806
  11. PREDNISOLONE [Suspect]
     Active Substance: PREDNISOLONE
     Dosage: 20 MG, QD PERORAL MEDICINE
     Route: 048
     Dates: start: 20230807, end: 20230820
  12. PREDNISOLONE [Suspect]
     Active Substance: PREDNISOLONE
     Dosage: 17.5 MG, QD PERORAL MEDICINE
     Route: 048
     Dates: start: 20230821, end: 20231001
  13. PREDNISOLONE [Suspect]
     Active Substance: PREDNISOLONE
     Route: 048
     Dates: start: 20231002, end: 20231015
  14. PREDNISOLONE [Suspect]
     Active Substance: PREDNISOLONE
     Dosage: 14 MG, QD PERORAL MEDICINE
     Route: 048
     Dates: start: 20231016, end: 20240317
  15. PREDNISOLONE [Suspect]
     Active Substance: PREDNISOLONE
     Dosage: 140 MG, QD PERORAL MEDICINE
     Route: 048
     Dates: start: 20240318, end: 20240331
  16. PREDNISOLONE [Suspect]
     Active Substance: PREDNISOLONE
     Dosage: 120 MG, QD PERORAL MEDICINE
     Route: 048
     Dates: start: 20240401, end: 20240407
  17. PREDNISOLONE [Suspect]
     Active Substance: PREDNISOLONE
     Route: 048
     Dates: start: 20240415, end: 20240425
  18. PREDNISOLONE [Suspect]
     Active Substance: PREDNISOLONE
     Dosage: 70 MG, QD PERORAL MEDICINE
     Route: 048
     Dates: start: 20240426, end: 20240502
  19. PREDNISOLONE [Suspect]
     Active Substance: PREDNISOLONE
     Dosage: 60 MG, QD PERORAL MEDICINE
     Route: 048
     Dates: start: 20240503, end: 20240512
  20. PREDNISOLONE [Suspect]
     Active Substance: PREDNISOLONE
     Dosage: 50 MG, QD PERORAL MEDICINE
     Route: 048
     Dates: start: 20240513, end: 20240519
  21. PREDNISOLONE [Suspect]
     Active Substance: PREDNISOLONE
     Dosage: 40 MG, QD PERORAL MEDICINE
     Route: 048
     Dates: start: 20240520, end: 20240526
  22. PREDNISOLONE [Suspect]
     Active Substance: PREDNISOLONE
     Dosage: 35 MG, QD PERORAL MEDICINE
     Route: 048
     Dates: start: 20240527, end: 20240630
  23. RITUXIMAB [Suspect]
     Active Substance: RITUXIMAB
     Indication: Granulomatosis with polyangiitis
     Route: 040
  24. RITUXIMAB [Suspect]
     Active Substance: RITUXIMAB
     Route: 040
     Dates: start: 20231114, end: 20231114
  25. RITUXIMAB [Suspect]
     Active Substance: RITUXIMAB
     Route: 040
     Dates: start: 20231121, end: 20231121
  26. RITUXIMAB [Suspect]
     Active Substance: RITUXIMAB
     Route: 040
     Dates: start: 20231128, end: 20231128
  27. RITUXIMAB [Suspect]
     Active Substance: RITUXIMAB
     Route: 040
     Dates: start: 20231205, end: 20231205
  28. SULFAMETHOXAZOLE\TRIMETHOPRIM [Suspect]
     Active Substance: SULFAMETHOXAZOLE\TRIMETHOPRIM
     Indication: Antifungal prophylaxis
     Route: 048
     Dates: start: 20231124
  29. SULFAMETHOXAZOLE\TRIMETHOPRIM [Suspect]
     Active Substance: SULFAMETHOXAZOLE\TRIMETHOPRIM
     Route: 048
  30. NEXIUM [Suspect]
     Active Substance: ESOMEPRAZOLE MAGNESIUM
     Indication: Product used for unknown indication
     Route: 048
     Dates: start: 20231124
  31. NEXIUM [Suspect]
     Active Substance: ESOMEPRAZOLE MAGNESIUM
     Route: 048
     Dates: start: 20240415
  32. VIBEGRON [Concomitant]
     Active Substance: VIBEGRON
     Route: 048
  33. EFFEXOR XR [Concomitant]
     Active Substance: VENLAFAXINE HYDROCHLORIDE
     Route: 048
  34. LATUDA [Concomitant]
     Active Substance: LURASIDONE HYDROCHLORIDE
  35. RIVOTRIL [Concomitant]
     Active Substance: CLONAZEPAM
     Route: 048
     Dates: end: 20240305
  36. LORMETAZEPAM [Concomitant]
     Active Substance: LORMETAZEPAM
     Route: 048
     Dates: end: 20230821
  37. LEVOMEPROMAZINE [Concomitant]
     Active Substance: LEVOMEPROMAZINE
     Route: 048
  38. MAGNESIUM OXIDE [Concomitant]
     Active Substance: MAGNESIUM OXIDE
     Route: 048
     Dates: end: 20240412
  39. ONEALFA [Concomitant]
     Active Substance: ALFACALCIDOL
     Route: 048
  40. BONALON [Concomitant]
     Active Substance: ALENDRONATE SODIUM
     Route: 048
  41. METHYLCOBALAMIN [Concomitant]
     Active Substance: METHYLCOBALAMIN
     Indication: Mononeuropathy multiplex
     Route: 048
  42. LYRICA [Concomitant]
     Active Substance: PREGABALIN
     Indication: Mononeuropathy multiplex
     Route: 048
     Dates: start: 202304, end: 20230601
  43. MIROGABALIN BESYLATE [Concomitant]
     Active Substance: MIROGABALIN BESYLATE
     Indication: Mononeuropathy multiplex
     Route: 048
     Dates: start: 20230602
  44. ROZEREM [Concomitant]
     Active Substance: RAMELTEON
     Route: 048
     Dates: start: 20231016
  45. CYCLOPHOSPHAMIDE [Concomitant]
     Active Substance: CYCLOPHOSPHAMIDE
     Route: 040
  46. CYCLOPHOSPHAMIDE [Concomitant]
     Active Substance: CYCLOPHOSPHAMIDE
     Route: 040

REACTIONS (5)
  - Herpes zoster [Recovered/Resolved]
  - Granulomatosis with polyangiitis [Unknown]
  - Hypertension [Recovering/Resolving]
  - Photosensitivity reaction [Recovering/Resolving]
  - COVID-19 [Recovering/Resolving]

NARRATIVE: CASE EVENT DATE: 20231124
